FAERS Safety Report 12162741 (Version 1)
Quarter: 2016Q1

REPORT INFORMATION
  Report Type: Spontaneous
  Country: None (occurrence: None)
  Receive Date: 20160308
  Receipt Date: 20160308
  Transmission Date: 20160526
  Serious: No
  Sender: FDA-Public Use
  Company Number: None

PATIENT
  Sex: Female

DRUGS (1)
  1. TERBINAFINE HCL 250 MG [Suspect]
     Active Substance: TERBINAFINE HYDROCHLORIDE

REACTIONS (1)
  - Weight increased [None]
